FAERS Safety Report 19192948 (Version 3)
Quarter: 2021Q2

REPORT INFORMATION
  Report Type: Other
  Country: CA (occurrence: CA)
  Receive Date: 20210429
  Receipt Date: 20210527
  Transmission Date: 20210717
  Serious: Yes (Other)
  Sender: FDA-Public Use
  Company Number: CA-ROCHE-2816103

PATIENT
  Sex: Female

DRUGS (11)
  1. CRESTOR [Concomitant]
     Active Substance: ROSUVASTATIN CALCIUM
  2. ESBRIET [Suspect]
     Active Substance: PIRFENIDONE
     Dosage: 5 TABLETS
     Route: 048
     Dates: start: 20210510
  3. GLUCOSAMINE [Concomitant]
     Active Substance: GLUCOSAMINE
  4. VOLTAREN [Concomitant]
     Active Substance: DICLOFENAC SODIUM
  5. ESBRIET [Suspect]
     Active Substance: PIRFENIDONE
     Dosage: 1068?1335 MG MILLIGRAM(S), 4?5 PILLS PER DAY
     Route: 048
     Dates: start: 2021, end: 2021
  6. SERTRALINE [Concomitant]
     Active Substance: SERTRALINE HYDROCHLORIDE
  7. ACETYLSALICYLIC ACID [Concomitant]
     Active Substance: ASPIRIN
  8. DIAZEPAM. [Suspect]
     Active Substance: DIAZEPAM
     Indication: PRODUCT USED FOR UNKNOWN INDICATION
     Route: 065
  9. SYMBICORT [Concomitant]
     Active Substance: BUDESONIDE\FORMOTEROL FUMARATE DIHYDRATE
  10. SALBUTAMOL [Concomitant]
     Active Substance: ALBUTEROL
  11. ESBRIET [Suspect]
     Active Substance: PIRFENIDONE
     Indication: IDIOPATHIC PULMONARY FIBROSIS
     Route: 048
     Dates: start: 20210423, end: 2021

REACTIONS (5)
  - Nausea [Unknown]
  - Decreased appetite [Unknown]
  - Interstitial lung disease [Unknown]
  - Lung hyperinflation [Unknown]
  - Abdominal discomfort [Unknown]
